FAERS Safety Report 16243796 (Version 1)
Quarter: 2019Q2

REPORT INFORMATION
  Report Type: Spontaneous
  Country: US (occurrence: US)
  Receive Date: 20190425
  Receipt Date: 20190425
  Transmission Date: 20190711
  Serious: Yes (Hospitalization)
  Sender: FDA-Public Use
  Company Number: None

PATIENT
  Age: 74 Year
  Sex: Female

DRUGS (7)
  1. DULOXETINE. [Concomitant]
     Active Substance: DULOXETINE
  2. EZETIMIBE. [Concomitant]
     Active Substance: EZETIMIBE
  3. ACYCLOVIR. [Concomitant]
     Active Substance: ACYCLOVIR
  4. FORTEO [Suspect]
     Active Substance: TERIPARATIDE
     Indication: OSTEOPOROSIS
     Route: 058
     Dates: start: 20190102, end: 20190419
  5. PROLIA [Suspect]
     Active Substance: DENOSUMAB
     Indication: OSTEOPOROSIS
     Dosage: ?          OTHER FREQUENCY:EVERY 6 MONTHS;?
     Route: 058
     Dates: start: 20180509
  6. POTASSIUM CL [Concomitant]
     Active Substance: POTASSIUM CHLORIDE
  7. DEXAMETHASON [Concomitant]
     Active Substance: DEXAMETHASONE

REACTIONS (1)
  - Plasma cell myeloma [None]

NARRATIVE: CASE EVENT DATE: 20190419
